FAERS Safety Report 25620438 (Version 3)
Quarter: 2025Q4

REPORT INFORMATION
  Report Type: Spontaneous
  Country: EU (occurrence: EU)
  Receive Date: 20250730
  Receipt Date: 20251030
  Transmission Date: 20260117
  Serious: Yes (Hospitalization, Other)
  Sender: AUROBINDO
  Company Number: EU-ASTRAZENECA-202507GLO008104DE

PATIENT
  Age: 55 Year
  Sex: Female
  Weight: 93 kg

DRUGS (24)
  1. PEMETREXED [Suspect]
     Active Substance: PEMETREXED
     Indication: Non-small cell lung cancer metastatic
     Dosage: 500 MILLIGRAM/SQ. METER
     Route: 042
     Dates: start: 20240910, end: 20240910
  2. PEMETREXED [Suspect]
     Active Substance: PEMETREXED
     Dosage: 500 MILLIGRAM/SQ. METER
     Route: 042
     Dates: start: 20241002, end: 20241002
  3. PEMETREXED [Suspect]
     Active Substance: PEMETREXED
     Dosage: 500 MILLIGRAM/SQ. METER
     Route: 042
     Dates: start: 20241029, end: 20241029
  4. PEMETREXED [Suspect]
     Active Substance: PEMETREXED
     Dosage: 500 MILLIGRAM/SQ. METER
     Route: 042
     Dates: start: 20241204, end: 20241204
  5. CARBOPLATIN [Suspect]
     Active Substance: CARBOPLATIN
     Indication: Non-small cell lung cancer metastatic
     Dosage: 5 AUC
     Route: 042
     Dates: start: 20240910, end: 20240910
  6. CARBOPLATIN [Suspect]
     Active Substance: CARBOPLATIN
     Dosage: 5 AUC
     Route: 042
     Dates: start: 20241002, end: 20241002
  7. CARBOPLATIN [Suspect]
     Active Substance: CARBOPLATIN
     Dosage: 5 AUC
     Route: 042
     Dates: start: 20241029, end: 20241029
  8. CARBOPLATIN [Suspect]
     Active Substance: CARBOPLATIN
     Dosage: 5 AUC
     Route: 042
     Dates: start: 20241204, end: 20241204
  9. PEMBROLIZUMAB [Suspect]
     Active Substance: PEMBROLIZUMAB
     Indication: Non-small cell lung cancer metastatic
     Dosage: 200 MILLIGRAM
     Route: 042
     Dates: start: 20240910, end: 20240910
  10. PEMBROLIZUMAB [Suspect]
     Active Substance: PEMBROLIZUMAB
     Dosage: 200 MILLIGRAM
     Route: 042
     Dates: start: 20241002, end: 20241002
  11. PEMBROLIZUMAB [Suspect]
     Active Substance: PEMBROLIZUMAB
     Dosage: 200 MILLIGRAM
     Route: 042
     Dates: start: 20241029, end: 20241029
  12. PEMBROLIZUMAB [Suspect]
     Active Substance: PEMBROLIZUMAB
     Dosage: 200 MILLIGRAM
     Route: 042
     Dates: start: 20241204, end: 20241204
  13. PEMBROLIZUMAB [Suspect]
     Active Substance: PEMBROLIZUMAB
     Dosage: 200 MILLIGRAM
     Route: 042
     Dates: start: 20250103, end: 20250103
  14. PEMBROLIZUMAB [Suspect]
     Active Substance: PEMBROLIZUMAB
     Dosage: 200 MILLIGRAM
     Route: 042
     Dates: start: 20250121, end: 20250121
  15. PEMBROLIZUMAB [Suspect]
     Active Substance: PEMBROLIZUMAB
     Dosage: 200 MILLIGRAM
     Route: 042
     Dates: start: 20250212, end: 20250212
  16. PEMBROLIZUMAB [Suspect]
     Active Substance: PEMBROLIZUMAB
     Dosage: 200 MILLIGRAM
     Route: 042
     Dates: start: 20250304, end: 20250304
  17. PEMBROLIZUMAB [Suspect]
     Active Substance: PEMBROLIZUMAB
     Dosage: 200 MILLIGRAM
     Route: 042
     Dates: start: 20250325, end: 20250325
  18. PEMBROLIZUMAB [Suspect]
     Active Substance: PEMBROLIZUMAB
     Dosage: 200 MILLIGRAM
     Route: 042
     Dates: start: 20250514, end: 20250514
  19. PEMBROLIZUMAB [Suspect]
     Active Substance: PEMBROLIZUMAB
     Dosage: 200 MILLIGRAM
     Route: 042
     Dates: start: 20250617, end: 20250617
  20. MOVICOL [Concomitant]
     Active Substance: POLYETHYLENE GLYCOL 3350\POTASSIUM CHLORIDE\SODIUM BICARBONATE\SODIUM CHLORIDE
     Indication: Constipation
     Dosage: UNK UNK, AS NECESSARY
     Route: 048
     Dates: start: 20241001
  21. DECTAFLUR\OLAFLUR\SODIUM FLUORIDE [Concomitant]
     Active Substance: DECTAFLUR\OLAFLUR\SODIUM FLUORIDE
     Indication: Prophylaxis
     Dosage: UNK
     Dates: start: 20240909
  22. FOLIC ACID [Concomitant]
     Active Substance: FOLIC ACID
     Indication: Premedication
     Dosage: 5 MILLIGRAM, ONCE A DAY
     Route: 048
     Dates: start: 20240909
  23. OLODATEROL HYDROCHLORIDE\TIOTROPIUM BROMIDE MONOHYDRATE [Concomitant]
     Active Substance: OLODATEROL HYDROCHLORIDE\TIOTROPIUM BROMIDE MONOHYDRATE
     Indication: Dyspnoea
     Dosage: 2 DOSAGE FORM
     Dates: start: 20240905
  24. PREDNISOLONE [Concomitant]
     Active Substance: PREDNISOLONE
     Indication: Product used for unknown indication
     Dosage: UNK
     Route: 048

REACTIONS (2)
  - Pneumonia [Recovered/Resolved]
  - Pneumonitis [Recovered/Resolved]

NARRATIVE: CASE EVENT DATE: 20250702
